FAERS Safety Report 9668619 (Version 3)
Quarter: 2014Q1

REPORT INFORMATION
  Report Type: Spontaneous
  Country: NO (occurrence: NO)
  Receive Date: 20131105
  Receipt Date: 20140115
  Transmission Date: 20141002
  Serious: Yes (Hospitalization, Other)
  Sender: FDA-Public Use
  Company Number: NO-AMGEN-NORSP2013076741

PATIENT
  Age: 27 Year
  Sex: Male
  Weight: 78 kg

DRUGS (7)
  1. VECTIBIX [Suspect]
     Indication: COLON CANCER
     Dosage: 468 MG, UNK
     Route: 065
     Dates: start: 20130606
  2. VECTIBIX [Suspect]
     Indication: METASTASES TO LIVER
     Dosage: UNK
     Route: 065
  3. VECTIBIX [Suspect]
     Dosage: UNK
     Route: 065
  4. 5 FU [Concomitant]
     Indication: NEOPLASM MALIGNANT
     Dosage: UNK
  5. LEUCOVORIN                         /00566701/ [Concomitant]
     Indication: NEOPLASM MALIGNANT
     Dosage: UNK
  6. OXALIPLATIN [Concomitant]
     Indication: NEOPLASM MALIGNANT
     Dosage: UNK
  7. DOXYLIN                            /00055702/ [Concomitant]
     Dosage: UNK
     Dates: start: 20130606

REACTIONS (5)
  - Skin fibrosis [Unknown]
  - Skin toxicity [Unknown]
  - Skin necrosis [Unknown]
  - Erythema [Unknown]
  - Rash maculo-papular [Unknown]
